FAERS Safety Report 24462118 (Version 1)
Quarter: 2024Q4

REPORT INFORMATION
  Report Type: Report from Study
  Country: US (occurrence: US)
  Receive Date: 20241018
  Receipt Date: 20241018
  Transmission Date: 20250115
  Serious: No
  Sender: ROCHE
  Company Number: US-ROCHE-3567627

PATIENT
  Sex: Female
  Weight: 70.76 kg

DRUGS (14)
  1. RITUXAN [Suspect]
     Active Substance: RITUXIMAB
     Indication: Rheumatoid arthritis
     Dosage: INFUSE 1000MG INTRAVENOUSLY ON DAY 1 AND DAY 15 THEN REPEAT EVERY 5 MONTHS?DOSAGE INFORMATION: IT CO
     Route: 041
     Dates: start: 2018
  2. BACLOFEN [Concomitant]
     Active Substance: BACLOFEN
  3. CELEBREX [Concomitant]
     Active Substance: CELECOXIB
     Indication: Pain
     Dosage: DOSAGE INSTRUCTIONS: TAKE WITH FOOD
     Route: 048
     Dates: start: 20171214
  4. GABAPENTIN [Concomitant]
     Active Substance: GABAPENTIN
     Route: 048
     Dates: start: 20190428
  5. LEFLUNOMIDE [Concomitant]
     Active Substance: LEFLUNOMIDE
     Route: 048
     Dates: start: 20200724
  6. RANITIDINE [Concomitant]
     Active Substance: RANITIDINE
  7. REQUIP [Concomitant]
     Active Substance: ROPINIROLE HYDROCHLORIDE
  8. RESTASIS [Concomitant]
     Active Substance: CYCLOSPORINE
  9. ROSUVASTATIN [Concomitant]
     Active Substance: ROSUVASTATIN
  10. HYDROXYCHLOROQUINE [Concomitant]
     Active Substance: HYDROXYCHLOROQUINE
     Route: 048
     Dates: start: 20191029
  11. BENAZEPRIL HYDROCHLORIDE [Concomitant]
     Active Substance: BENAZEPRIL HYDROCHLORIDE
     Route: 048
  12. OXYCODONE AND ACETAMINOPHEN [Concomitant]
     Active Substance: ACETAMINOPHEN\OXYCODONE HYDROCHLORIDE
     Dosage: DOSE STRENGTH: 5-325 MG
     Route: 048
  13. PILOCARPINE HYDROCHLORIDE [Concomitant]
     Active Substance: PILOCARPINE HYDROCHLORIDE
     Indication: Sjogren^s syndrome
     Route: 048
     Dates: start: 20210616
  14. DULERA [Concomitant]
     Active Substance: FORMOTEROL FUMARATE DIHYDRATE\MOMETASONE FUROATE
     Dosage: DOSE STRENGTH: 200-5 MCG?2 PUFFS IN THE MORNING AND EVENING

REACTIONS (1)
  - Uterine prolapse [Recovered/Resolved]

NARRATIVE: CASE EVENT DATE: 20210101
